FAERS Safety Report 5201357-4 (Version None)
Quarter: 2007Q1

REPORT INFORMATION
  Report Type: 
  Country: None (occurrence: None)
  Receive Date: 20070104
  Receipt Date: 20061220
  Transmission Date: 20070707
  Serious: Yes (Death)
  Sender: FDA-Public Use
  Company Number: 2006S1011729

PATIENT
  Age: 55 Year
  Sex: Male

DRUGS (5)
  1. FENTANYL TRANSDERMAL SYSTEM [Suspect]
     Indication: NECK PAIN
     Dosage: 400 UG/HR; 1X; TDER
     Route: 062
     Dates: end: 20061201
  2. CALCIUM CARBONATE [Concomitant]
  3. CHLOROTHIAZIDE [Concomitant]
  4. VERAPAMIL [Concomitant]
  5. ATENOLOL [Concomitant]

REACTIONS (2)
  - GASTRITIS HAEMORRHAGIC [None]
  - INCORRECT DOSE ADMINISTERED [None]
